FAERS Safety Report 8721865 (Version 2)
Quarter: 2013Q1

REPORT INFORMATION
  Report Type: Spontaneous
  Country: BR (occurrence: BR)
  Receive Date: 20120814
  Receipt Date: 20130211
  Transmission Date: 20140127
  Serious: Yes (Other)
  Sender: FDA-Public Use
  Company Number: PHHY2012BR068756

PATIENT
  Sex: Male

DRUGS (1)
  1. SANDOSTATIN LAR [Suspect]
     Indication: BRAIN NEOPLASM
     Dosage: UNK
     Route: 030
     Dates: start: 20101001

REACTIONS (2)
  - Polyp [Recovered/Resolved]
  - Blood prolactin increased [Recovered/Resolved]
